FAERS Safety Report 6091527-8 (Version None)
Quarter: 2009Q1

REPORT INFORMATION
  Report Type: 
  Country: None (occurrence: None)
  Receive Date: 20090225
  Receipt Date: 20090216
  Transmission Date: 20090719
  Serious: Yes (Hospitalization, Other)
  Sender: FDA-Public Use
  Company Number: PHHY2008FR22716

PATIENT
  Age: 82 Year
  Sex: Male

DRUGS (3)
  1. GLEEVEC [Suspect]
     Indication: GASTROINTESTINAL STROMAL TUMOUR
     Dosage: 400 MG / DAY
     Route: 048
     Dates: start: 20080401
  2. GLEEVEC [Suspect]
     Dosage: 200 MG  / DAY
     Route: 048
     Dates: start: 20080601, end: 20080801
  3. GLEEVEC [Suspect]
     Dosage: 200 MG, QD
     Dates: start: 20080906, end: 20080909

REACTIONS (5)
  - DEHYDRATION [None]
  - DRUG RASH WITH EOSINOPHILIA AND SYSTEMIC SYMPTOMS [None]
  - HYPERSENSITIVITY [None]
  - NEPHRITIS ALLERGIC [None]
  - RENAL IMPAIRMENT [None]
